FAERS Safety Report 10621181 (Version 4)
Quarter: 2015Q2

REPORT INFORMATION
  Report Type: Spontaneous
  Country: ES (occurrence: ES)
  Receive Date: 20141203
  Receipt Date: 20150504
  Transmission Date: 20150821
  Serious: Yes (Hospitalization, Other)
  Sender: FDA-Public Use
  Company Number: ES-AMGEN-ESPSP2014017833

PATIENT
  Age: 67 Year
  Sex: Female

DRUGS (13)
  1. ADIRO [Concomitant]
     Active Substance: ASPIRIN
     Indication: ANGINA PECTORIS
     Dosage: 1 DF, 1X/DAY
  2. HIPERTENE [Concomitant]
     Indication: HYPERTENSION
     Dosage: 1 DF, 1X/DAY
  3. ENBREL [Suspect]
     Active Substance: ETANERCEPT
     Dosage: 50 MG, WEEKLY
     Route: 058
  4. METOJECT [Suspect]
     Active Substance: METHOTREXATE SODIUM
     Indication: RHEUMATOID ARTHRITIS
     Dosage: 15 MG, WEEKLY (ADMINISTERED ON MONDAYS)
     Route: 058
  5. ZALDIAR [Concomitant]
     Active Substance: ACETAMINOPHEN\TRAMADOL HYDROCHLORIDE
     Indication: PAIN
     Dosage: UNK, IF NEEDED
  6. ENBREL [Suspect]
     Active Substance: ETANERCEPT
     Dosage: UNK
     Route: 065
  7. ENBREL [Suspect]
     Active Substance: ETANERCEPT
     Dosage: 50 MG, WEEKLY
     Route: 065
  8. ACFOL [Concomitant]
     Active Substance: FOLIC ACID
     Indication: IMMUNE SYSTEM DISORDER
     Dosage: 1 TABLET 2X/WEEK
  9. ENBREL [Suspect]
     Active Substance: ETANERCEPT
     Indication: RHEUMATOID ARTHRITIS
     Dosage: 50 MG, WEEKLY
     Route: 058
     Dates: start: 20131122
  10. ENBREL [Suspect]
     Active Substance: ETANERCEPT
     Dosage: 50 MG, QWK
     Route: 058
  11. ENBREL [Suspect]
     Active Substance: ETANERCEPT
     Dosage: 50 MG, WEEKLY
     Route: 058
  12. ARTILOG [Concomitant]
     Active Substance: CELECOXIB
     Indication: INFLAMMATION
     Dosage: 1 TABLET/24 HOURS
  13. SEGURIL [Concomitant]
     Active Substance: FUROSEMIDE
     Indication: DIURETIC THERAPY
     Dosage: 1 TABLET/24 HOURS

REACTIONS (17)
  - Mobility decreased [Unknown]
  - Injection site erythema [Recovered/Resolved]
  - Arthralgia [Unknown]
  - Oral herpes [Recovered/Resolved]
  - Pain [Not Recovered/Not Resolved]
  - Headache [Unknown]
  - Injection site haematoma [Unknown]
  - Arterial occlusive disease [Unknown]
  - Abnormal sensation in eye [Unknown]
  - Pain in extremity [Unknown]
  - Angina pectoris [Not Recovered/Not Resolved]
  - Hyperkeratosis [Not Recovered/Not Resolved]
  - Injection site pruritus [Recovered/Resolved]
  - Injection site pain [Not Recovered/Not Resolved]
  - Weight increased [Not Recovered/Not Resolved]
  - Injection site inflammation [Recovered/Resolved]
  - Injection site pain [Recovered/Resolved]

NARRATIVE: CASE EVENT DATE: 201311
